FAERS Safety Report 7775565-2 (Version None)
Quarter: 2011Q3

REPORT INFORMATION
  Report Type: 
  Country: None (occurrence: None)
  Receive Date: 20110923
  Receipt Date: 20110921
  Transmission Date: 20111222
  Serious: Yes (Death, Hospitalization, Other)
  Sender: FDA-Public Use
  Company Number: AT-ABBOTT-11P-009-0850734-00

PATIENT
  Age: 54 Year
  Sex: Male
  Weight: 71.5 kg

DRUGS (17)
  1. SUPRESSIN [Concomitant]
     Indication: PRODUCT USED FOR UNKNOWN INDICATION
     Dosage: 1-0-1
  2. MIRTAZAPINE [Concomitant]
     Indication: PRODUCT USED FOR UNKNOWN INDICATION
  3. BAYPRESS [Concomitant]
     Indication: PRODUCT USED FOR UNKNOWN INDICATION
     Dosage: 1-0-1
  4. ARANESP [Concomitant]
     Indication: PRODUCT USED FOR UNKNOWN INDICATION
     Route: 042
  5. CARVEDILOL [Concomitant]
     Indication: PRODUCT USED FOR UNKNOWN INDICATION
  6. HALCION [Concomitant]
     Indication: PRODUCT USED FOR UNKNOWN INDICATION
  7. ZEMPLAR [Suspect]
     Indication: RENAL FAILURE CHRONIC
     Dates: start: 20110302
  8. RENAGEL [Concomitant]
     Indication: PRODUCT USED FOR UNKNOWN INDICATION
     Dosage: WEEKLY DOSE: 42
     Route: 048
  9. RENAGEL [Concomitant]
     Dosage: UNIT DOSE AND FREQUENCY: 2-2-2
  10. ANTIPHOSPHAT [Concomitant]
  11. CLONAZEPAM [Concomitant]
     Indication: PRODUCT USED FOR UNKNOWN INDICATION
     Dosage: 0-0-0-2
  12. PANTOPRAZOLE SODIUM [Concomitant]
     Indication: PRODUCT USED FOR UNKNOWN INDICATION
     Dosage: 1-0-0
  13. RHEUTROP RETARD [Concomitant]
     Indication: PRODUCT USED FOR UNKNOWN INDICATION
  14. DREISACARB [Concomitant]
     Indication: PRODUCT USED FOR UNKNOWN INDICATION
     Dosage: WEEKLY DOSE: 43
     Route: 048
  15. RENAGEL [Concomitant]
     Dosage: WEEKLY DOSE: 42
  16. ANTIPHOSPHAT [Concomitant]
     Indication: PRODUCT USED FOR UNKNOWN INDICATION
  17. DREISACARB [Concomitant]
     Dosage: WEEKLY DOSE: 43

REACTIONS (7)
  - MULTI-ORGAN FAILURE [None]
  - NERVOUS SYSTEM DISORDER [None]
  - CEREBRAL HAEMORRHAGE [None]
  - PULMONARY HAEMORRHAGE [None]
  - CARDIAC DISORDER [None]
  - ARRHYTHMIA [None]
  - PNEUMONIA [None]
